FAERS Safety Report 5927285-4 (Version None)
Quarter: 2008Q4

REPORT INFORMATION
  Report Type: 
  Country: None (occurrence: None)
  Receive Date: 20081022
  Receipt Date: 20081013
  Transmission Date: 20090506
  Serious: Yes (Hospitalization)
  Sender: FDA-Public Use
  Company Number: FR-MERCK-0810FRA00035

PATIENT
  Age: 78 Year
  Sex: Male

DRUGS (5)
  1. COSOPT [Suspect]
     Indication: INTRAOCULAR PRESSURE INCREASED
     Route: 048
     Dates: start: 20080221, end: 20080224
  2. PILOCARPINE NITRATE [Suspect]
     Indication: INTRAOCULAR PRESSURE INCREASED
     Route: 047
     Dates: start: 20080221, end: 20080224
  3. ASPIRIN LYSINE [Concomitant]
     Route: 048
  4. HYDROCHLOROTHIAZIDE AND IRBESARTAN [Concomitant]
     Indication: HYPERTENSION
     Route: 048
  5. TIMOLOL [Concomitant]
     Indication: INTRAOCULAR PRESSURE INCREASED
     Route: 047

REACTIONS (5)
  - AGITATION [None]
  - ANXIETY [None]
  - COGNITIVE DISORDER [None]
  - DYSURIA [None]
  - HALLUCINATION, VISUAL [None]
